FAERS Safety Report 4842787-X (Version None)
Quarter: 2005Q4

REPORT INFORMATION
  Report Type: 
  Country: None (occurrence: None)
  Receive Date: 20051130
  Receipt Date: 20051124
  Transmission Date: 20060501
  Serious: Yes (Life-Threatening, Hospitalization)
  Sender: FDA-Public Use
  Company Number: J081-002-002096

PATIENT
  Age: 74 Year
  Sex: Female
  Weight: 52 kg

DRUGS (8)
  1. ARICEPT [Suspect]
     Indication: DEMENTIA ALZHEIMER'S TYPE
     Dosage: 6 MG, 2 IN 1 D, ORAL
     Route: 048
     Dates: end: 20051028
  2. FAMOTIDINE [Suspect]
     Indication: GASTRIC ULCER
     Dosage: 40 MG, 2 IN 1 D, ORAL
     Route: 048
  3. AMLODIPINE BESYLATE [Concomitant]
  4. DIOVAN [Concomitant]
  5. LASIX [Concomitant]
  6. ALDACTONE [Concomitant]
  7. LORAZEPAM [Concomitant]
  8. GLYCORIN (METFORMIN HYDROCHLORIDE) [Concomitant]

REACTIONS (5)
  - DIZZINESS [None]
  - NODAL RHYTHM [None]
  - PAIN [None]
  - SINUS ARREST [None]
  - TORSADE DE POINTES [None]
